FAERS Safety Report 14449859 (Version 1)
Quarter: 2018Q1

REPORT INFORMATION
  Report Type: Spontaneous
  Country: RU (occurrence: RU)
  Receive Date: 20180128
  Receipt Date: 20180128
  Transmission Date: 20180509
  Serious: Yes (Hospitalization)
  Sender: FDA-Public Use
  Company Number: RU-ASTRAZENECA-2018SE09282

PATIENT
  Age: 58 Year
  Sex: Male
  Weight: 85 kg

DRUGS (7)
  1. THROMBO ASS [Concomitant]
     Active Substance: ASPIRIN
  2. ROSUVASTATIN. [Concomitant]
     Active Substance: ROSUVASTATIN
  3. BRILINTA [Suspect]
     Active Substance: TICAGRELOR
     Indication: STENT PLACEMENT
     Route: 048
     Dates: start: 20171011
  4. BRILINTA [Suspect]
     Active Substance: TICAGRELOR
     Indication: MYOCARDIAL INFARCTION
     Route: 048
     Dates: start: 20171011
  5. CONCOR [Concomitant]
     Active Substance: BISOPROLOL FUMARATE
  6. VEROSPIRON [Concomitant]
     Active Substance: SPIRONOLACTONE
  7. PRESTARIUM A [Concomitant]
     Active Substance: PERINDOPRIL ARGININE

REACTIONS (5)
  - Blood pressure decreased [Not Recovered/Not Resolved]
  - Dizziness [Not Recovered/Not Resolved]
  - Chest pain [Not Recovered/Not Resolved]
  - Asthenia [Not Recovered/Not Resolved]
  - Dyspnoea [Not Recovered/Not Resolved]

NARRATIVE: CASE EVENT DATE: 20180116
